FAERS Safety Report 7084555-7 (Version None)
Quarter: 2010Q4

REPORT INFORMATION
  Report Type: 
  Country: None (occurrence: None)
  Receive Date: 20101104
  Receipt Date: 20101025
  Transmission Date: 20110411
  Serious: Yes (Other)
  Sender: FDA-Public Use
  Company Number: TW-PFIZER INC-2010135366

PATIENT
  Age: 56 Year
  Sex: Male

DRUGS (3)
  1. DOXORUBICIN HCL [Suspect]
     Indication: URETERIC CANCER METASTATIC
  2. METHOTREXATE [Suspect]
     Indication: URETERIC CANCER METASTATIC
  3. CYCLOPHOSPHAMIDE [Suspect]
     Indication: URETERIC CANCER METASTATIC

REACTIONS (6)
  - ABDOMINAL PAIN UPPER [None]
  - GASTRIC DILATATION [None]
  - GASTRIC HAEMORRHAGE [None]
  - HAEMATEMESIS [None]
  - NAUSEA [None]
  - VOMITING [None]
